FAERS Safety Report 8973417 (Version 2)
Quarter: 2013Q1

REPORT INFORMATION
  Report Type: Spontaneous
  Country: AU (occurrence: AU)
  Receive Date: 20121218
  Receipt Date: 20130116
  Transmission Date: 20140127
  Serious: Yes (Death)
  Sender: FDA-Public Use
  Company Number: AU-B.I. PHARMACEUTICALS,INC./RIDGEFIELD-2012-AU-01986AU

PATIENT
  Sex: Male

DRUGS (7)
  1. PRADAXA [Suspect]
     Indication: CEREBROVASCULAR ACCIDENT PROPHYLAXIS
     Dosage: 220 MG
     Route: 048
     Dates: start: 20110809, end: 2012
  2. PRADAXA [Suspect]
     Indication: ATRIAL FIBRILLATION
  3. CARDIPRIN [Concomitant]
     Dosage: 100 MG
     Route: 048
  4. DILANTIN [Concomitant]
     Dosage: 200 MG
     Route: 048
  5. EFEXOR-XR [Concomitant]
     Dosage: 150 MG
     Route: 048
  6. LIPITOR [Concomitant]
     Dosage: 80 MG
     Route: 048
  7. NORVASC [Concomitant]
     Dosage: 5 MG
     Route: 048

REACTIONS (3)
  - Cardiac failure congestive [Fatal]
  - Sepsis [Fatal]
  - Pneumonia [Fatal]
